FAERS Safety Report 19713616 (Version 1)
Quarter: 2021Q3

REPORT INFORMATION
  Report Type: Spontaneous
  Country: US (occurrence: US)
  Receive Date: 20210817
  Receipt Date: 20210817
  Transmission Date: 20211014
  Serious: No
  Sender: FDA-Public Use
  Company Number: None

PATIENT
  Age: 75 Year
  Sex: Male
  Weight: 182 kg

DRUGS (1)
  1. ATEZOLIZUMAB (ATEZOLIZUMAB 60MG/ML INJ, SOLN) [Suspect]
     Active Substance: ATEZOLIZUMAB
     Dosage: ?          OTHER ROUTE:IV?
     Dates: start: 20210212, end: 20210308

REACTIONS (2)
  - Rash [None]
  - Dermatitis exfoliative [None]

NARRATIVE: CASE EVENT DATE: 20210311
